FAERS Safety Report 8204087-X (Version None)
Quarter: 2012Q1

REPORT INFORMATION
  Report Type: 
  Country: None (occurrence: None)
  Receive Date: 20120313
  Receipt Date: 20120301
  Transmission Date: 20120608
  Serious: Yes (Other)
  Sender: FDA-Public Use
  Company Number: DE-NOVOPROD-346308

PATIENT
  Age: 65 Year
  Sex: Female
  Weight: 68 kg

DRUGS (3)
  1. NITRAZEPAM [Suspect]
     Indication: SLEEP DISORDER
     Dosage: 1 DF, SINGLE
     Route: 065
  2. PROTAPHANE [Suspect]
     Indication: TYPE 1 DIABETES MELLITUS
     Dosage: 18 DF, QD
     Route: 065
  3. ACTRAPID [Suspect]
     Indication: TYPE 1 DIABETES MELLITUS
     Dosage: 12 DF, QD
     Route: 065

REACTIONS (4)
  - CARDIOVASCULAR INSUFFICIENCY [None]
  - VISUAL IMPAIRMENT [None]
  - ARRHYTHMIA [None]
  - DIZZINESS [None]
